FAERS Safety Report 8546410-2 (Version None)
Quarter: 2012Q3

REPORT INFORMATION
  Report Type: 
  Country: None (occurrence: None)
  Receive Date: 20120727
  Receipt Date: 20120105
  Transmission Date: 20120928
  Serious: No
  Sender: FDA-Public Use
  Company Number: US-ASTRAZENECA-2012SE01001

PATIENT
  Age: 63 Year
  Sex: Male

DRUGS (5)
  1. SEROQUEL XR [Suspect]
     Route: 048
  2. LAMICTAL [Concomitant]
  3. COONOPIN [Concomitant]
  4. WALBUTRIN [Concomitant]
  5. STATIN [Concomitant]

REACTIONS (1)
  - MYALGIA [None]
